FAERS Safety Report 6712382-6 (Version None)
Quarter: 2010Q2

REPORT INFORMATION
  Report Type: 
  Country: None (occurrence: None)
  Receive Date: 20100505
  Receipt Date: 20100422
  Transmission Date: 20101027
  Serious: Yes (Hospitalization)
  Sender: FDA-Public Use
  Company Number: US-ROCHE-700955

PATIENT
  Age: 95 Year
  Sex: Female

DRUGS (2)
  1. XELODA [Suspect]
     Dosage: FREQUENCY: TWO WEEKS ON THEN ONE WEEK OFF
     Route: 048
     Dates: start: 20100204, end: 20100218
  2. XELODA [Suspect]
     Dosage: FREQUENCY: TWO WEEKS ON THEN ONE WEEK OFF
     Route: 048
     Dates: start: 20100315, end: 20100322

REACTIONS (4)
  - BACK PAIN [None]
  - GASTROINTESTINAL DISORDER [None]
  - MALIGNANT NEOPLASM PROGRESSION [None]
  - RADIATION SKIN INJURY [None]
